FAERS Safety Report 5585236-9 (Version None)
Quarter: 2008Q1

REPORT INFORMATION
  Report Type: 
  Country: None (occurrence: None)
  Receive Date: 20080109
  Receipt Date: 20080104
  Transmission Date: 20080703
  Serious: Yes (Hospitalization, Other)
  Sender: FDA-Public Use
  Company Number: US-ASTRAZENECA-2007UW25141

PATIENT
  Age: 53 Year
  Sex: Female
  Weight: 67.1 kg

DRUGS (8)
  1. ARIMIDEX [Suspect]
     Indication: BREAST CANCER FEMALE
     Route: 048
     Dates: start: 20000101, end: 20010101
  2. ARIMIDEX [Suspect]
     Route: 048
     Dates: start: 20010101, end: 20020101
  3. ARIMIDEX [Suspect]
     Route: 048
     Dates: start: 20040101
  4. ARIMIDEX [Suspect]
     Route: 048
     Dates: start: 20070201, end: 20080101
  5. BENICAR [Concomitant]
  6. VITAMIN D [Concomitant]
  7. CALCIUM GLUCONATE [Concomitant]
  8. VITAMIN CAP [Concomitant]

REACTIONS (16)
  - ARTHRALGIA [None]
  - ASTHENIA [None]
  - DIPLOPIA [None]
  - DISEASE RECURRENCE [None]
  - EYE DISCHARGE [None]
  - EYE DISORDER [None]
  - FATIGUE [None]
  - HEADACHE [None]
  - HYPERTENSION [None]
  - MOVEMENT DISORDER [None]
  - NAUSEA [None]
  - PAIN [None]
  - PHOTOSENSITIVITY REACTION [None]
  - SPINAL DISORDER [None]
  - VERTEBRAL COLUMN MASS [None]
  - VOMITING [None]
